FAERS Safety Report 8922513 (Version 3)
Quarter: 2013Q1

REPORT INFORMATION
  Report Type: Spontaneous
  Country: US (occurrence: US)
  Receive Date: 20121123
  Receipt Date: 20130103
  Transmission Date: 20140127
  Serious: Yes (Other)
  Sender: FDA-Public Use
  Company Number: US-PFIZER INC-2012289569

PATIENT
  Sex: Female

DRUGS (1)
  1. PROVERA [Suspect]
     Dosage: 10 MG, UNK
     Dates: start: 1982

REACTIONS (1)
  - Dementia [Unknown]
